FAERS Safety Report 14705233 (Version 1)
Quarter: 2018Q2

REPORT INFORMATION
  Report Type: Spontaneous
  Country: CA (occurrence: CA)
  Receive Date: 20180402
  Receipt Date: 20180402
  Transmission Date: 20180711
  Serious: Yes (Other)
  Sender: FDA-Public Use
  Company Number: CA-009507513-1803CAN011505

PATIENT
  Sex: Female

DRUGS (1)
  1. IVERMECTIN. [Suspect]
     Active Substance: IVERMECTIN
     Indication: HOOKWORM INFECTION
     Dosage: UNK

REACTIONS (2)
  - Hookworm infection [Not Recovered/Not Resolved]
  - Treatment failure [Unknown]
